FAERS Safety Report 7323856-1 (Version None)
Quarter: 2011Q1

REPORT INFORMATION
  Report Type: 
  Country: None (occurrence: None)
  Receive Date: 20110301
  Receipt Date: 20110223
  Transmission Date: 20110831
  Serious: Yes (Hospitalization)
  Sender: FDA-Public Use
  Company Number: A0915075A

PATIENT
  Age: 96 Year
  Sex: Female

DRUGS (14)
  1. OXYBUTYNIN [Concomitant]
  2. VITAMIN B-12 [Concomitant]
  3. ZEMPLAR [Concomitant]
  4. ARIMIDEX [Concomitant]
  5. CALCIUM [Concomitant]
  6. TYKERB [Suspect]
     Indication: BREAST CANCER
     Dosage: 1000MG PER DAY
     Route: 048
     Dates: start: 20100701
  7. LIPITOR [Concomitant]
  8. SYNTHROID [Concomitant]
  9. ATENOLOL [Concomitant]
  10. ASPIRIN [Concomitant]
  11. VITAMIN D [Concomitant]
  12. ACTOS [Concomitant]
  13. MULTI-VITAMIN [Concomitant]
  14. AMLODIPINE [Concomitant]

REACTIONS (4)
  - BACK PAIN [None]
  - PELVIC FRACTURE [None]
  - HAIR TEXTURE ABNORMAL [None]
  - ALOPECIA [None]
